FAERS Safety Report 6328410-6 (Version None)
Quarter: 2009Q3

REPORT INFORMATION
  Report Type: 
  Country: None (occurrence: None)
  Receive Date: 20090825
  Receipt Date: 20090316
  Transmission Date: 20100115
  Serious: No
  Sender: FDA-Public Use
  Company Number: US-ABBOTT-09P-163-0563291-00

PATIENT
  Sex: Female
  Weight: 61.29 kg

DRUGS (3)
  1. SYNTHROID [Suspect]
     Indication: HYPOTHYROIDISM
     Route: 048
     Dates: start: 20090214
  2. SYNTHROID [Suspect]
     Dosage: VARIOUS DOSES IN PAST
     Route: 048
     Dates: start: 19840101, end: 20090213
  3. INSULIN [Concomitant]
     Indication: DIABETES MELLITUS

REACTIONS (2)
  - PRURITUS [None]
  - RASH [None]
